FAERS Safety Report 10112334 (Version 1)
Quarter: 2014Q2

REPORT INFORMATION
  Report Type: Spontaneous
  Country: US (occurrence: US)
  Receive Date: 20140425
  Receipt Date: 20140425
  Transmission Date: 20141212
  Serious: No
  Sender: FDA-Public Use
  Company Number: US-TEVA-476595USA

PATIENT
  Age: 47 Year
  Sex: Female
  Weight: 95.34 kg

DRUGS (4)
  1. QNASL [Suspect]
     Indication: HYPERSENSITIVITY
     Route: 045
     Dates: start: 201310, end: 201401
  2. SYNTHROID [Concomitant]
     Indication: HYPOTHYROIDISM
  3. BENICAR [Concomitant]
     Indication: HYPERTENSION
  4. CRESTOR [Concomitant]
     Indication: BLOOD CHOLESTEROL INCREASED

REACTIONS (7)
  - Nasal discomfort [Not Recovered/Not Resolved]
  - Rhinorrhoea [Not Recovered/Not Resolved]
  - Scab [Not Recovered/Not Resolved]
  - Ulcer [Not Recovered/Not Resolved]
  - Rhinitis [Not Recovered/Not Resolved]
  - Rhinalgia [Not Recovered/Not Resolved]
  - Rhinalgia [Recovered/Resolved]
